FAERS Safety Report 10877107 (Version 3)
Quarter: 2015Q2

REPORT INFORMATION
  Report Type: Spontaneous
  Country: RS (occurrence: RS)
  Receive Date: 20150302
  Receipt Date: 20150413
  Transmission Date: 20150821
  Serious: Yes (Life-Threatening, Other)
  Sender: FDA-Public Use
  Company Number: RS-RANBAXY-2015RR-93255

PATIENT
  Age: 3 Year
  Sex: Female
  Weight: 9 kg

DRUGS (1)
  1. DORMICUM [Suspect]
     Active Substance: MIDAZOLAM\MIDAZOLAM HYDROCHLORIDE
     Indication: PREMEDICATION
     Dosage: 0.05 MG/KG
     Route: 042

REACTIONS (1)
  - Respiratory arrest [Recovered/Resolved]
